FAERS Safety Report 12289504 (Version 1)
Quarter: 2016Q2

REPORT INFORMATION
  Report Type: Spontaneous
  Country: US (occurrence: None)
  Receive Date: 20160420
  Receipt Date: 20160420
  Transmission Date: 20160815
  Serious: No
  Sender: FDA-Public Use
  Company Number: None

PATIENT
  Age: 68 Year
  Sex: Male

DRUGS (1)
  1. IMATINIB 400 MG SUN PHARMACIES [Suspect]
     Active Substance: IMATINIB MESYLATE
     Indication: CHRONIC MYELOID LEUKAEMIA
     Dosage: 400 MG 1/2 TABLET EVERY OTHER DAY PO
     Route: 048
     Dates: start: 20160225

REACTIONS (6)
  - Nausea [None]
  - Renal tubular acidosis [None]
  - Oedema [None]
  - Fatigue [None]
  - Scrotal oedema [None]
  - Blood creatine increased [None]

NARRATIVE: CASE EVENT DATE: 201604
